FAERS Safety Report 26008203 (Version 1)
Quarter: 2025Q4

REPORT INFORMATION
  Report Type: Spontaneous
  Country: US (occurrence: US)
  Receive Date: 20251106
  Receipt Date: 20251106
  Transmission Date: 20260118
  Serious: Yes (Hospitalization)
  Sender: SANOFI AVENTIS
  Company Number: US-SA-2025SA323029

PATIENT
  Age: 67 Year
  Sex: Male

DRUGS (9)
  1. DUPIXENT [Suspect]
     Active Substance: DUPILUMAB
     Indication: Asthma
     Dosage: 300 MG, QOW
     Route: 058
     Dates: start: 20241112
  2. Slow iron [Concomitant]
  3. PREDNISONE [Concomitant]
     Active Substance: PREDNISONE
  4. SEROQUEL [Concomitant]
     Active Substance: QUETIAPINE FUMARATE
  5. SILDENAFIL [Concomitant]
     Active Substance: SILDENAFIL
  6. TEMAZEPAM [Concomitant]
     Active Substance: TEMAZEPAM
  7. TYLENOL [Concomitant]
     Active Substance: ACETAMINOPHEN
  8. VOQUEZNA [Concomitant]
     Active Substance: VONOPRAZAN FUMARATE
  9. VITAMINS NOS [Concomitant]
     Active Substance: VITAMINS

REACTIONS (3)
  - Hospitalisation [Unknown]
  - Hypotension [Unknown]
  - Drug ineffective [Unknown]

NARRATIVE: CASE EVENT DATE: 20250101
